FAERS Safety Report 6830588-2 (Version None)
Quarter: 2010Q3

REPORT INFORMATION
  Report Type: 
  Country: None (occurrence: None)
  Receive Date: 20100706
  Receipt Date: 20100621
  Transmission Date: 20110219
  Serious: Yes (Life-Threatening, Other)
  Sender: FDA-Public Use
  Company Number: 2010AC00064

PATIENT
  Age: 36 Year
  Sex: Male

DRUGS (22)
  1. DIGOXIN [Suspect]
     Dosage: 250 MCG; PO
     Route: 048
     Dates: start: 20021201
  2. DIGOXIN [Suspect]
     Dosage: 0.125 MG; PO
     Route: 048
     Dates: start: 20031031, end: 20080101
  3. DIGOXIN [Suspect]
     Dosage: 0.250 MG; PO
     Route: 048
     Dates: start: 20020702, end: 20030101
  4. HYDROCODOME [Concomitant]
  5. DOXYCYCLINE [Concomitant]
  6. SULFAMETHOSAZOLE/TMP [Concomitant]
  7. ENALAPRIL MALEATE [Concomitant]
  8. WARFARIN SODIUM [Concomitant]
  9. LISINOPRIL [Concomitant]
  10. ERYTHROMYCIN [Concomitant]
  11. TRIAMCINOLONE [Concomitant]
  12. ATENOLOL [Concomitant]
  13. AMBIEN [Concomitant]
  14. RISPERDAL [Concomitant]
  15. AMIODARONE HCL [Concomitant]
  16. LEVOTHROID [Concomitant]
  17. PRIMIDONE [Concomitant]
  18. ZYPREXA [Concomitant]
  19. AMOXICILLIN [Concomitant]
  20. CYCLOBENZAPRINE [Concomitant]
  21. PRILOSEC [Concomitant]
  22. COREG [Concomitant]

REACTIONS (14)
  - ANXIETY [None]
  - CARDIAC FAILURE [None]
  - CONTUSION [None]
  - DIZZINESS [None]
  - DRUG ABUSE [None]
  - ECONOMIC PROBLEM [None]
  - EMOTIONAL DISTRESS [None]
  - FALL [None]
  - LOSS OF CONSCIOUSNESS [None]
  - MULTIPLE INJURIES [None]
  - PARTNER STRESS [None]
  - RESUSCITATION [None]
  - SOCIAL PROBLEM [None]
  - TREATMENT NONCOMPLIANCE [None]
